FAERS Safety Report 22293782 (Version 1)
Quarter: 2023Q2

REPORT INFORMATION
  Report Type: Spontaneous
  Country: US (occurrence: None)
  Receive Date: 20230508
  Receipt Date: 20230508
  Transmission Date: 20230721
  Serious: No
  Sender: FDA-Public Use
  Company Number: 2023A085502

PATIENT

DRUGS (1)
  1. PULMICORT FLEXHALER [Suspect]
     Active Substance: BUDESONIDE
     Indication: Sarcoidosis
     Route: 055

REACTIONS (9)
  - Sarcoidosis [Unknown]
  - General physical health deterioration [Unknown]
  - Biopsy lung [Unknown]
  - Computerised tomogram thorax [Unknown]
  - Chest X-ray [Unknown]
  - Product use issue [Unknown]
  - Expired product administered [Unknown]
  - Therapeutic product effect decreased [Unknown]
  - Incorrect dose administered by device [Unknown]
